FAERS Safety Report 10246667 (Version 1)
Quarter: 2014Q2

REPORT INFORMATION
  Report Type: Spontaneous
  Country: US (occurrence: US)
  Receive Date: 20140619
  Receipt Date: 20140619
  Transmission Date: 20141212
  Serious: Yes (Other)
  Sender: FDA-Public Use
  Company Number: US-BAYER-2014-087045

PATIENT
  Age: 64 Year
  Sex: Male

DRUGS (1)
  1. ALEVE CAPLET [Suspect]
     Indication: ARTHRALGIA

REACTIONS (8)
  - Pharyngitis streptococcal [Unknown]
  - Pharyngeal erythema [Unknown]
  - Erythema multiforme [Recovered/Resolved]
  - Blister [Recovered/Resolved]
  - Oral mucosal blistering [Recovered/Resolved]
  - Scab [Recovered/Resolved]
  - Dysphagia [None]
  - Feeling abnormal [None]
